FAERS Safety Report 9210782 (Version 2)
Quarter: 2013Q2

REPORT INFORMATION
  Report Type: Spontaneous
  Country: JP (occurrence: JP)
  Receive Date: 20130404
  Receipt Date: 20130607
  Transmission Date: 20140414
  Serious: Yes (Hospitalization)
  Sender: FDA-Public Use
  Company Number: JP-GLAXOSMITHKLINE-B0879948A

PATIENT
  Age: 16 Year
  Sex: Female

DRUGS (1)
  1. RELENZA [Suspect]
     Indication: PYREXIA
     Dosage: 2IUAX PER DAY
     Route: 055
     Dates: start: 20130328, end: 20130328

REACTIONS (2)
  - Convulsion [Recovered/Resolved]
  - Loss of consciousness [Recovered/Resolved]
